FAERS Safety Report 14249444 (Version 2)
Quarter: 2017Q4

REPORT INFORMATION
  Report Type: Spontaneous
  Country: JP (occurrence: JP)
  Receive Date: 20171204
  Receipt Date: 20171213
  Transmission Date: 20180321
  Serious: Yes (Other)
  Sender: FDA-Public Use
  Company Number: JP-AMGEN-JPNSP2017179793

PATIENT
  Age: 46 Year
  Sex: Female

DRUGS (13)
  1. LANSOPRAZOLE. [Concomitant]
     Active Substance: LANSOPRAZOLE
     Dosage: UNK (DOSAGE IS UNCERTAIN)
     Route: 048
     Dates: start: 20170405
  2. DEXART [Concomitant]
     Active Substance: DEXAMETHASONE SODIUM PHOSPHATE
     Dosage: UNK
  3. HERCEPTIN [Suspect]
     Active Substance: TRASTUZUMAB
     Dosage: 8 MG, QD
     Route: 041
     Dates: start: 20170424
  4. G-LASTA [Suspect]
     Active Substance: PEGFILGRASTIM
     Dosage: UNK
     Route: 058
     Dates: start: 20170426
  5. HERCEPTIN [Suspect]
     Active Substance: TRASTUZUMAB
     Indication: BREAST CANCER
     Dosage: 8 MG, QD
     Route: 041
     Dates: start: 20170404, end: 20170404
  6. PROMAC [Concomitant]
     Active Substance: NITROFURANTOIN
     Dosage: UNK, DOSAGE IS UNCERTAIN
     Route: 065
     Dates: start: 20170516, end: 20170828
  7. MYSER [Concomitant]
     Active Substance: DIFLUPREDNATE
     Dosage: UNK, QD (DOSAGE IS UNCERTAIN), CUTANEOUS
     Route: 065
     Dates: start: 20170516, end: 20170516
  8. DOCETAXEL. [Concomitant]
     Active Substance: DOCETAXEL
     Indication: BREAST CANCER
     Dosage: UNK, DOSAGE IS UNCERTAIN
     Route: 041
     Dates: start: 20170404, end: 20170606
  9. FUROSEMIDE. [Concomitant]
     Active Substance: FUROSEMIDE
     Dosage: UNK, DOSAGE IS UNCERTAIN
     Route: 065
     Dates: start: 20170405
  10. G-LASTA [Suspect]
     Active Substance: PEGFILGRASTIM
     Indication: PRODUCT USED FOR UNKNOWN INDICATION
     Dosage: 3.6 MG, UNK, THE FRACTIONATION DOSE FREQUENCY IS UNCERTAIN, DOSE INTERVAL UNCERTAINTY
     Route: 058
     Dates: start: 20170406, end: 201704
  11. RINDERON V [Suspect]
     Active Substance: BETAMETHASONE VALERATE
     Indication: MYALGIA
     Dosage: UNK (DOSAGE IS UNCERTAIN)
     Route: 048
  12. MAGMITT [Concomitant]
     Active Substance: MAGNESIUM OXIDE
     Dosage: UNK, DOSAGE IS UNCERTAIN
     Route: 065
     Dates: start: 20170406, end: 20170606
  13. TRAMAL [Concomitant]
     Active Substance: TRAMADOL
     Dosage: UNK, DOSAGE IS UNCERTAIN
     Route: 048
     Dates: start: 20171010, end: 20171031

REACTIONS (9)
  - Myalgia [Not Recovered/Not Resolved]
  - Pruritus [Recovering/Resolving]
  - Neuropathy peripheral [Not Recovered/Not Resolved]
  - Infusion site reaction [Unknown]
  - Injection site discolouration [Recovered/Resolved]
  - Arthralgia [Unknown]
  - Back pain [Unknown]
  - Hypoaesthesia [Not Recovered/Not Resolved]
  - Injection site vesicles [Recovered/Resolved]

NARRATIVE: CASE EVENT DATE: 20170409
